FAERS Safety Report 9732613 (Version 1)
Quarter: 2013Q4

REPORT INFORMATION
  Report Type: Spontaneous
  Country: FR (occurrence: FR)
  Receive Date: 20131205
  Receipt Date: 20131205
  Transmission Date: 20140711
  Serious: Yes (Hospitalization)
  Sender: FDA-Public Use
  Company Number: FR-MYLANLABS-2013S1026450

PATIENT
  Age: 47 Year
  Sex: Male

DRUGS (2)
  1. QUININE [Suspect]
     Indication: PYREXIA
     Dosage: TWO DAILY INJECTIONS
     Route: 030
  2. AMOXICILLIN [Concomitant]
     Indication: PYREXIA
     Dosage: 2G/D/15D
     Route: 048

REACTIONS (4)
  - Gas gangrene [Not Recovered/Not Resolved]
  - Septic shock [Not Recovered/Not Resolved]
  - Renal failure acute [Not Recovered/Not Resolved]
  - Systemic inflammatory response syndrome [Not Recovered/Not Resolved]
